FAERS Safety Report 4742862-4 (Version None)
Quarter: 2005Q3

REPORT INFORMATION
  Report Type: 
  Country: None (occurrence: None)
  Receive Date: 20050810
  Receipt Date: 20050810
  Transmission Date: 20060218
  Serious: Yes (Death)
  Sender: FDA-Public Use
  Company Number: None

PATIENT
  Age: 37 Year
  Sex: Female
  Weight: 91 kg

DRUGS (10)
  1. LOVENOX [Suspect]
     Indication: DEEP VEIN THROMBOSIS
     Dosage: 80MG   Q12HRS      SUBCUTANEO
     Route: 058
     Dates: start: 20050505, end: 20050525
  2. DAPTOMYCIN [Concomitant]
  3. CIPROFLOXACIN HCL [Concomitant]
  4. FLAGYL [Concomitant]
  5. PANTOPRAZOLE [Concomitant]
  6. HYDROMORPHONE [Concomitant]
  7. CASPOFUNGIN [Concomitant]
  8. SYNTHROID [Concomitant]
  9. DIAZEPAM [Concomitant]
  10. ARANESP [Concomitant]

REACTIONS (1)
  - RETROPERITONEAL HAEMORRHAGE [None]
